FAERS Safety Report 23460022 (Version 1)
Quarter: 2024Q1

REPORT INFORMATION
  Report Type: Spontaneous
  Country: RU (occurrence: RU)
  Receive Date: 20240131
  Receipt Date: 20240131
  Transmission Date: 20240409
  Serious: Yes (Life-Threatening, Other)
  Sender: FDA-Public Use
  Company Number: RU-ABBVIE-5616461

PATIENT
  Age: 12 Year
  Sex: Male
  Weight: 25 kg

DRUGS (5)
  1. SEVOFLURANE [Suspect]
     Active Substance: SEVOFLURANE
     Indication: Product used for unknown indication
     Dosage: 2,5 % (VOL.)
     Route: 065
     Dates: start: 20220310, end: 20220310
  2. ENALAPRIL [Concomitant]
     Active Substance: ENALAPRIL
     Indication: Renal hypertension
     Dosage: FREQUENCY TEXT: CONSTANTLY
  3. FENTANYL [Suspect]
     Active Substance: FENTANYL\FENTANYL CITRATE
     Indication: Anaesthesia
     Dosage: 0,005%  - 1ML?FREQUENCY TEXT: ONCE
     Route: 065
     Dates: start: 20220310, end: 20220310
  4. CALCIUM CHLORIDE\MAGNESIUM CHLORIDE\MALIC ACID\POTASSIUM CHLORIDE\SODI [Suspect]
     Active Substance: CALCIUM CHLORIDE\MAGNESIUM CHLORIDE\MALIC ACID\POTASSIUM CHLORIDE\SODIUM ACETATE\SODIUM CHLORIDE
     Indication: Product used for unknown indication
     Dosage: FREQUENCY TEXT: ONCE
     Route: 065
     Dates: start: 20220310, end: 20220310
  5. ROCURONIUM [Suspect]
     Active Substance: ROCURONIUM BROMIDE
     Indication: Anaesthesia
     Route: 065
     Dates: start: 20220310, end: 20220310

REACTIONS (3)
  - Sinus bradycardia [Recovered/Resolved]
  - Rash maculo-papular [Recovered/Resolved]
  - Hypotension [Recovered/Resolved]

NARRATIVE: CASE EVENT DATE: 20220310
